FAERS Safety Report 5478807-1 (Version None)
Quarter: 2007Q4

REPORT INFORMATION
  Report Type: 
  Country: None (occurrence: None)
  Receive Date: 20071002
  Receipt Date: 20070918
  Transmission Date: 20080405
  Serious: Yes (Death, Hospitalization)
  Sender: FDA-Public Use
  Company Number: 2007BI019982

PATIENT
  Sex: Female

DRUGS (2)
  1. AVONEX [Suspect]
     Indication: DRUG USE FOR UNKNOWN INDICATION
     Dates: start: 19980101, end: 20060101
  2. REBIF [Concomitant]

REACTIONS (1)
  - LUNG NEOPLASM MALIGNANT [None]
